FAERS Safety Report 5762272-0 (Version None)
Quarter: 2008Q2

REPORT INFORMATION
  Report Type: 
  Country: None (occurrence: None)
  Receive Date: 20080609
  Receipt Date: 20080528
  Transmission Date: 20081010
  Serious: Yes (Other)
  Sender: FDA-Public Use
  Company Number: US-JNJFOC-20080600416

PATIENT
  Age: 77 Year
  Sex: Female
  Weight: 54.43 kg

DRUGS (7)
  1. EXTRA STRENGTH TYLENOL [Suspect]
     Route: 048
  2. EXTRA STRENGTH TYLENOL [Suspect]
     Indication: RHEUMATOID ARTHRITIS
     Route: 048
  3. LEVAQUIN [Concomitant]
  4. SYNTHROID [Concomitant]
     Indication: THYROID DISORDER
  5. VITAMINS [Concomitant]
     Indication: GENERAL PHYSICAL CONDITION
  6. BLOOD PRESSURE MEDICATION [Concomitant]
     Indication: HYPERTENSION
  7. CALCIUM [Concomitant]
     Indication: GENERAL PHYSICAL CONDITION

REACTIONS (5)
  - ASTHENIA [None]
  - EATING DISORDER [None]
  - INTENTIONAL DRUG MISUSE [None]
  - MALAISE [None]
  - MEDICATION TAMPERING [None]
